FAERS Safety Report 8378922-9 (Version None)
Quarter: 2012Q2

REPORT INFORMATION
  Report Type: 
  Country: None (occurrence: None)
  Receive Date: 20120523
  Receipt Date: 20120521
  Transmission Date: 20120825
  Serious: No
  Sender: FDA-Public Use
  Company Number: US-PFIZER INC-2012122924

PATIENT
  Sex: Male
  Weight: 102 kg

DRUGS (5)
  1. BENAZEPRIL [Concomitant]
     Indication: HYPERTENSION
     Dosage: 12.5 MG, UNK
  2. CELEBREX [Suspect]
     Indication: PAIN IN EXTREMITY
  3. CELEBREX [Suspect]
     Indication: MUSCULOSKELETAL PAIN
     Dosage: 200 MG, 1X/DAY
     Route: 048
     Dates: start: 20120518, end: 20120519
  4. CELEBREX [Suspect]
     Indication: BACK PAIN
  5. METOPROLOL [Concomitant]
     Indication: HYPERTENSION
     Dosage: UNK

REACTIONS (3)
  - INFLUENZA [None]
  - VOMITING [None]
  - HYPERSENSITIVITY [None]
